FAERS Safety Report 15954558 (Version 3)
Quarter: 2019Q3

REPORT INFORMATION
  Report Type: Spontaneous
  Country: US (occurrence: US)
  Receive Date: 20190213
  Receipt Date: 20190911
  Transmission Date: 20191004
  Serious: Yes (Hospitalization, Other)
  Sender: FDA-Public Use
  Company Number: US-SA-2019SA039566

PATIENT
  Age: 58 Year
  Sex: Female

DRUGS (12)
  1. SODIUM CHLORIDE. [Concomitant]
     Active Substance: SODIUM CHLORIDE
  2. AMLODIPINE [Concomitant]
     Active Substance: AMLODIPINE BESYLATE
  3. PROAIR HFA [Concomitant]
     Active Substance: ALBUTEROL SULFATE
  4. BUPROPION. [Concomitant]
     Active Substance: BUPROPION
  5. MONTELUKAST [Concomitant]
     Active Substance: MONTELUKAST SODIUM
  6. DUPIXENT [Suspect]
     Active Substance: DUPILUMAB
     Indication: PSORIASIS
     Dosage: 300 MG, QOW
     Route: 058
     Dates: start: 20180816
  7. OMEPRAZOLE. [Concomitant]
     Active Substance: OMEPRAZOLE
  8. APRISO [Concomitant]
     Active Substance: MESALAMINE
  9. TAGAMET [Concomitant]
     Active Substance: CIMETIDINE
  10. TEMAZEPAM. [Concomitant]
     Active Substance: TEMAZEPAM
  11. BUDESONIDE. [Concomitant]
     Active Substance: BUDESONIDE
  12. ESCITALOPRAM [Concomitant]
     Active Substance: ESCITALOPRAM OXALATE

REACTIONS (5)
  - Intracranial aneurysm [Not Recovered/Not Resolved]
  - Tooth disorder [Not Recovered/Not Resolved]
  - Foot fracture [Not Recovered/Not Resolved]
  - Psoriasis [Not Recovered/Not Resolved]
  - Product use in unapproved indication [Unknown]

NARRATIVE: CASE EVENT DATE: 20190114
